FAERS Safety Report 9771811 (Version 2)
Quarter: 2014Q1

REPORT INFORMATION
  Report Type: Spontaneous
  Country: FR (occurrence: FR)
  Receive Date: 20131219
  Receipt Date: 20140123
  Transmission Date: 20141002
  Serious: Yes (Hospitalization, Other)
  Sender: FDA-Public Use
  Company Number: FR-ROCHE-1320860

PATIENT
  Age: 70 Year
  Sex: Male

DRUGS (6)
  1. ZELBORAF [Suspect]
     Indication: METASTATIC MALIGNANT MELANOMA
     Route: 048
     Dates: start: 20131207
  2. ZELBORAF [Suspect]
     Route: 048
     Dates: start: 20131228
  3. BISOPROLOL [Concomitant]
     Route: 048
  4. OLMETEC [Concomitant]
  5. CRESTOR [Concomitant]
  6. KEPPRA [Concomitant]
     Route: 048

REACTIONS (6)
  - Speech disorder [Not Recovered/Not Resolved]
  - Urinary incontinence [Not Recovered/Not Resolved]
  - Abdominal distension [Recovering/Resolving]
  - Localised oedema [Recovering/Resolving]
  - Pain in extremity [Recovering/Resolving]
  - Hypoaesthesia [Recovering/Resolving]
